FAERS Safety Report 9874410 (Version 1)
Quarter: 2014Q1

REPORT INFORMATION
  Report Type: Spontaneous
  Country: US (occurrence: US)
  Receive Date: 20140206
  Receipt Date: 20140206
  Transmission Date: 20141002
  Serious: Yes (Other)
  Sender: FDA-Public Use
  Company Number: US-ROCHE-1343369

PATIENT
  Age: 3 Year
  Sex: Female

DRUGS (5)
  1. BEVACIZUMAB [Suspect]
     Indication: OLIGOASTROCYTOMA
     Route: 065
  2. IRINOTECAN [Suspect]
     Indication: OLIGOASTROCYTOMA
     Route: 065
  3. TEMOZOLOMIDE [Suspect]
     Indication: OLIGOASTROCYTOMA
     Route: 065
  4. VORINOSTAT [Suspect]
     Indication: OLIGOASTROCYTOMA
     Route: 065
  5. ISOTRETINOIN [Concomitant]
     Indication: OLIGOASTROCYTOMA
     Route: 065

REACTIONS (1)
  - Glioblastoma multiforme [Unknown]
